FAERS Safety Report 4388659-9 (Version None)
Quarter: 2004Q2

REPORT INFORMATION
  Report Type: 
  Country: None (occurrence: None)
  Receive Date: 20040624
  Receipt Date: 20040608
  Transmission Date: 20050107
  Serious: No
  Sender: FDA-Public Use
  Company Number: 2004GB01381

PATIENT
  Age: 48 Year
  Sex: Female

DRUGS (1)
  1. ARIMIDEX [Suspect]
     Dosage: 1 MG QD PO
     Route: 048
     Dates: start: 20031001

REACTIONS (4)
  - ARTHRALGIA [None]
  - BONE PAIN [None]
  - MOVEMENT DISORDER [None]
  - MYALGIA [None]
